FAERS Safety Report 6261686-2 (Version None)
Quarter: 2009Q3

REPORT INFORMATION
  Report Type: 
  Country: None (occurrence: None)
  Receive Date: 20090709
  Receipt Date: 20090305
  Transmission Date: 20100115
  Serious: No
  Sender: FDA-Public Use
  Company Number: US-BAYER-200916641NA

PATIENT
  Age: 38 Year
  Sex: Female
  Weight: 91 kg

DRUGS (4)
  1. ULTRAVIST 370 [Suspect]
     Indication: COMPUTERISED TOMOGRAM ABDOMEN
     Dosage: TOTAL DAILY DOSE: 80 ML  UNIT DOSE: 500 ML
     Route: 042
     Dates: start: 20090305, end: 20090305
  2. MICARDIS [Concomitant]
  3. NEXIUM [Concomitant]
  4. ASPIRIN [Concomitant]

REACTIONS (2)
  - ERYTHEMA [None]
  - URTICARIA [None]
